FAERS Safety Report 20335173 (Version 1)
Quarter: 2022Q1

REPORT INFORMATION
  Report Type: Spontaneous
  Country: DE (occurrence: DE)
  Receive Date: 20220114
  Receipt Date: 20220114
  Transmission Date: 20220423
  Serious: Yes (Life-Threatening, Hospitalization, Other)
  Sender: FDA-Public Use
  Company Number: None

PATIENT
  Age: 30 Year
  Sex: Female
  Weight: 85 kg

DRUGS (5)
  1. BETAMETHASONE [Suspect]
     Active Substance: BETAMETHASONE
     Indication: Prophylaxis
     Dosage: 12 MILLIGRAM, QD
     Route: 030
     Dates: start: 20211209, end: 20211210
  2. ATOSIBAN [Suspect]
     Active Substance: ATOSIBAN
     Indication: Tocolysis
     Dosage: 186.75 MILLIGRAM, QD
     Route: 042
     Dates: start: 20211209, end: 20211210
  3. MAGNESIUM [Suspect]
     Active Substance: MAGNESIUM
     Indication: Nervous system disorder prophylaxis
     Dosage: 24 MILLIGRAM, QD
     Route: 042
     Dates: start: 20211209, end: 20211210
  4. FENOTEROL [Suspect]
     Active Substance: FENOTEROL
     Indication: Tocolysis
     Dosage: 83.52 MILLIGRAM, QD
     Route: 042
     Dates: start: 20211210, end: 20211212
  5. CEFUROXIME [Concomitant]
     Active Substance: CEFUROXIME
     Indication: Cervical incompetence
     Dosage: 4.5 GRAM, QD
     Route: 042
     Dates: start: 20211209, end: 20211216

REACTIONS (10)
  - Chest pain [Recovering/Resolving]
  - Tachycardia [Recovering/Resolving]
  - Transaminases increased [Not Recovered/Not Resolved]
  - Tachypnoea [Recovering/Resolving]
  - Oedema peripheral [Recovering/Resolving]
  - Fibrin D dimer increased [Not Recovered/Not Resolved]
  - Troponin T increased [Not Recovered/Not Resolved]
  - Dyspnoea [Recovering/Resolving]
  - Oxygen saturation decreased [Recovering/Resolving]
  - Exposure during pregnancy [Unknown]

NARRATIVE: CASE EVENT DATE: 20211212
